FAERS Safety Report 24362508 (Version 3)
Quarter: 2024Q4

REPORT INFORMATION
  Report Type: Spontaneous
  Country: ES (occurrence: ES)
  Receive Date: 20240925
  Receipt Date: 20241028
  Transmission Date: 20250114
  Serious: Yes (Death, Life-Threatening, Hospitalization, Other)
  Sender: BRACCO
  Company Number: ES-BRACCO-2024ES05146

PATIENT
  Age: 60 Year
  Sex: Female

DRUGS (16)
  1. SULFUR HEXAFLUORIDE [Suspect]
     Active Substance: SULFUR HEXAFLUORIDE
     Indication: Ultrasound liver
     Dosage: 2.4 ML, SINGLE
     Route: 042
     Dates: start: 20240816, end: 20240816
  2. SULFUR HEXAFLUORIDE [Suspect]
     Active Substance: SULFUR HEXAFLUORIDE
     Indication: Ultrasound liver
     Dosage: 2.4 ML, SINGLE
     Route: 042
     Dates: start: 20240816, end: 20240816
  3. SULFUR HEXAFLUORIDE [Suspect]
     Active Substance: SULFUR HEXAFLUORIDE
     Indication: Ultrasound liver
     Dosage: 2.4 ML, SINGLE
     Route: 042
     Dates: start: 20240816, end: 20240816
  4. CISPLATIN [Concomitant]
     Active Substance: CISPLATIN
     Dosage: UNK
  5. ETOPOSIDE [Concomitant]
     Active Substance: ETOPOSIDE
     Dosage: UNK
  6. DEXAMETHASONE [Concomitant]
     Active Substance: DEXAMETHASONE
     Dosage: 4 MG, TID
     Route: 048
     Dates: start: 20240802
  7. HIBOR [Concomitant]
     Dosage: 1 DF, QD
     Route: 058
     Dates: start: 20240722
  8. FLUTICASONE PROPIONATE\SALMETEROL XINAFOATE [Concomitant]
     Active Substance: FLUTICASONE PROPIONATE\SALMETEROL XINAFOATE
     Dosage: 2 DF, QD, 2 INHALATIONS EVERY 24 HOURS
     Dates: start: 20240604
  9. LORAZEPAM [Concomitant]
     Active Substance: LORAZEPAM
     Dosage: 1 MG, BID
     Route: 048
     Dates: start: 20240724
  10. METAMIZOLE SODIUM [Concomitant]
     Active Substance: METAMIZOLE SODIUM
     Dosage: 1 DF, TID
     Route: 042
  11. MYCOSTATIN [Concomitant]
     Active Substance: NYSTATIN
     Dosage: 1 ML, TID
     Route: 048
     Dates: start: 20240802
  12. OMEPRAZOLE [Concomitant]
     Active Substance: OMEPRAZOLE
     Dosage: 20 MG, QD
     Route: 048
  13. PARACETAMOL KERN PHARMA [Concomitant]
     Dosage: 1 G, TID
     Route: 048
     Dates: start: 20240722
  14. PRIMPERAN [Concomitant]
     Active Substance: METOCLOPRAMIDE HYDROCHLORIDE
     Dosage: 1 ML, TID
     Route: 048
     Dates: start: 20240802
  15. TRAMADOL CINFA [Concomitant]
     Dosage: 50 MG, QID
     Route: 048
     Dates: start: 20240722
  16. ALBUTEROL [Concomitant]
     Active Substance: ALBUTEROL
     Indication: Product used for unknown indication
     Dosage: UNK

REACTIONS (4)
  - Cardio-respiratory arrest [Fatal]
  - Dyspnoea [Fatal]
  - Loss of consciousness [Fatal]
  - Hypoxia [Fatal]

NARRATIVE: CASE EVENT DATE: 20240816
